FAERS Safety Report 8140930-0 (Version None)
Quarter: 2012Q1

REPORT INFORMATION
  Report Type: 
  Country: None (occurrence: None)
  Receive Date: 20120216
  Receipt Date: 20120214
  Transmission Date: 20120608
  Serious: Yes (Hospitalization)
  Sender: FDA-Public Use
  Company Number: ES-SHIRE-SPV1-2012-00157

PATIENT
  Sex: Female

DRUGS (2)
  1. ASPIRIN [Interacting]
     Indication: PRODUCT USED FOR UNKNOWN INDICATION
     Dosage: 100 MG, 1X/DAY:QD
     Route: 048
  2. ANAGRELIDE HYDROCHLORIDE [Suspect]
     Indication: ESSENTIAL THROMBOCYTHAEMIA
     Dosage: UNK, UNKNOWN
     Route: 065

REACTIONS (2)
  - RETROPERITONEAL HAEMATOMA [None]
  - DRUG INTERACTION [None]
